FAERS Safety Report 6793399-2 (Version None)
Quarter: 2010Q2

REPORT INFORMATION
  Report Type: 
  Country: None (occurrence: None)
  Receive Date: 20100624
  Receipt Date: 20100507
  Transmission Date: 20101027
  Serious: Yes (Hospitalization, Other)
  Sender: FDA-Public Use
  Company Number: US-MYLANLABS-2010S1001966

PATIENT
  Age: 38 Year
  Sex: Male
  Weight: 113.4 kg

DRUGS (6)
  1. CLOZAPINE [Suspect]
     Indication: SCHIZOPHRENIA
     Route: 048
     Dates: start: 20080101, end: 20080101
  2. CLOZAPINE [Suspect]
     Route: 048
     Dates: start: 20090101, end: 20100203
  3. CLOZAPINE [Suspect]
     Route: 048
     Dates: end: 20100315
  4. XANAX [Concomitant]
  5. KLONOPIN [Concomitant]
     Dosage: PRN
  6. SEROQUEL [Concomitant]
     Dosage: DISCONTINUED SIX MONTHS AGO

REACTIONS (1)
  - GRANULOCYTOPENIA [None]
